FAERS Safety Report 8558335 (Version 2)
Quarter: 2013Q2

REPORT INFORMATION
  Report Type: Spontaneous
  Country: US (occurrence: US)
  Receive Date: 20120511
  Receipt Date: 20130510
  Transmission Date: 20140414
  Serious: No
  Sender: FDA-Public Use
  Company Number: US-GLAXOSMITHKLINE-A0960989A

PATIENT
  Age: 75 Year
  Sex: Female

DRUGS (5)
  1. TYKERB [Suspect]
     Indication: BRAIN NEOPLASM
     Dosage: 5TAB PER DAY
     Route: 048
     Dates: start: 2010
  2. XELODA [Concomitant]
  3. FASLODEX [Concomitant]
  4. HERCEPTIN [Concomitant]
  5. AREDIA [Concomitant]

REACTIONS (1)
  - Diarrhoea [Not Recovered/Not Resolved]
